FAERS Safety Report 9564967 (Version 4)
Quarter: 2014Q1

REPORT INFORMATION
  Report Type: Report from Study
  Country: US (occurrence: US)
  Receive Date: 20130930
  Receipt Date: 20140108
  Transmission Date: 20141002
  Serious: Yes (Hospitalization)
  Sender: FDA-Public Use
  Company Number: US-ASTELLAS-2013US010108

PATIENT
  Age: 69 Year
  Sex: Male
  Weight: 78 kg

DRUGS (10)
  1. ERLOTINIB TABLET [Suspect]
     Indication: RENAL CELL CARCINOMA
     Dosage: 150 MG, UID/QD
     Route: 048
     Dates: start: 20130801, end: 20130918
  2. ERLOTINIB TABLET [Suspect]
     Dosage: 150 MG, UID/QD
     Route: 048
     Dates: start: 20130924
  3. TIVANTINIB [Suspect]
     Indication: RENAL CELL CARCINOMA
     Dosage: 360 MG, BID
     Route: 048
     Dates: start: 20130801
  4. TIVANTINIB [Suspect]
     Dosage: 360 MG, BID
     Route: 048
     Dates: start: 20130924
  5. LISINOPRIL [Concomitant]
     Indication: HYPERTENSION
     Dosage: 20 MG, UID/QD
     Route: 048
  6. LISINOPRIL [Concomitant]
     Dosage: 20 MG, BID
     Route: 048
     Dates: start: 2009
  7. CLONIDINE [Concomitant]
     Indication: HYPERTENSION
     Dosage: UNK
     Route: 062
     Dates: start: 2009, end: 201307
  8. CLINDAMYCIN [Concomitant]
     Indication: RASH
     Dosage: 2-3 TIMES/DAY
     Route: 065
     Dates: start: 20130808
  9. HYDROCHLOROTHIAZIDE [Concomitant]
     Indication: PRODUCT USED FOR UNKNOWN INDICATION
     Dosage: 12.5 MG, UID/QD
     Route: 048
  10. ASPIRIN [Concomitant]
     Indication: PRODUCT USED FOR UNKNOWN INDICATION
     Dosage: 81 MG, UID/QD
     Route: 048

REACTIONS (4)
  - Off label use [Unknown]
  - Atrioventricular block complete [Recovered/Resolved]
  - Sinus bradycardia [Unknown]
  - Dizziness [Recovered/Resolved]
